FAERS Safety Report 9401147 (Version 1)
Quarter: 2013Q3

REPORT INFORMATION
  Report Type: Spontaneous
  Country: US (occurrence: US)
  Receive Date: 20130715
  Receipt Date: 20130715
  Transmission Date: 20140515
  Serious: No
  Sender: FDA-Public Use
  Company Number: US-PFIZER INC-2013205448

PATIENT
  Age: 66 Year
  Sex: Female
  Weight: 113.38 kg

DRUGS (2)
  1. DETROL LA [Suspect]
     Indication: MICTURITION URGENCY
     Dosage: UNK
     Dates: start: 201307
  2. LANTUS [Concomitant]
     Indication: DIABETES MELLITUS
     Dosage: 40 IU, 1X/DAY

REACTIONS (4)
  - Dry eye [Not Recovered/Not Resolved]
  - Dry mouth [Not Recovered/Not Resolved]
  - Stomatitis [Not Recovered/Not Resolved]
  - Eye pain [Not Recovered/Not Resolved]
